FAERS Safety Report 9838429 (Version 1)
Quarter: 2014Q1

REPORT INFORMATION
  Report Type: Report from Study
  Country: DE (occurrence: DE)
  Receive Date: 20140123
  Receipt Date: 20140123
  Transmission Date: 20141002
  Serious: Yes (Other)
  Sender: FDA-Public Use
  Company Number: DE-SA-2014SA006555

PATIENT
  Age: 70 Year
  Sex: Female
  Weight: 86 kg

DRUGS (8)
  1. MULTAQ [Suspect]
     Indication: ATRIAL FIBRILLATION
     Route: 065
     Dates: start: 20121005, end: 201307
  2. BETA BLOCKING AGENTS [Concomitant]
     Dates: start: 201111
  3. VITAMIN K [Concomitant]
     Indication: ANTICOAGULANT THERAPY
     Dates: start: 20111005
  4. VALSARTAN [Concomitant]
  5. PHENPROCOUMON [Concomitant]
  6. TORASEMIDE [Concomitant]
  7. BISOPROLOL [Concomitant]
  8. AMLODIPINE [Concomitant]

REACTIONS (1)
  - Atrial fibrillation [Unknown]
